FAERS Safety Report 8302018-5 (Version None)
Quarter: 2012Q2

REPORT INFORMATION
  Report Type: 
  Country: None (occurrence: None)
  Receive Date: 20120420
  Receipt Date: 20120411
  Transmission Date: 20120825
  Serious: Yes (Disabling, Other)
  Sender: FDA-Public Use
  Company Number: FR-ASTRAZENECA-2012SE20078

PATIENT
  Age: 58 Year
  Sex: Female
  Weight: 53 kg

DRUGS (5)
  1. ARIMIDEX [Suspect]
     Indication: BREAST CANCER
     Route: 048
     Dates: start: 20100203, end: 20101022
  2. UNSPECIFIED COLLYRIUM [Concomitant]
     Route: 047
  3. PREDNISONE TAB [Concomitant]
     Indication: THERMAL BURN
     Route: 048
     Dates: start: 20110125
  4. ARIMIDEX [Suspect]
     Route: 048
     Dates: start: 20110210
  5. CACIT VIT D3 [Concomitant]
     Route: 048
     Dates: start: 20110610, end: 20120201

REACTIONS (5)
  - ARTHRALGIA [None]
  - TENDONITIS [None]
  - ALOPECIA [None]
  - MEMORY IMPAIRMENT [None]
  - DISTURBANCE IN ATTENTION [None]
